FAERS Safety Report 5408500-2 (Version None)
Quarter: 2007Q3

REPORT INFORMATION
  Report Type: 
  Country: None (occurrence: None)
  Receive Date: 20070806
  Receipt Date: 20070726
  Transmission Date: 20080115
  Serious: Yes (Other)
  Sender: FDA-Public Use
  Company Number: CHPA2007US08176

PATIENT
  Age: 61 Year
  Sex: Male

DRUGS (13)
  1. NICOTINE [Suspect]
     Indication: SMOKING CESSATION THERAPY
     Dosage: 21 MG, QD; TRANSDERMAL
     Route: 062
     Dates: start: 20070718
  2. CRESTOR [Suspect]
     Dosage: ORAL
     Route: 048
     Dates: start: 20070718
  3. PREDNISONE TAB [Concomitant]
  4. AUGMENTIN '125' [Concomitant]
  5. FUROSEMIDE [Concomitant]
  6. HYDROZIDE (HYDROCHLOROTHIAZIDE) [Concomitant]
  7. LISNOPRIL (LISINOPRIL) [Concomitant]
  8. OLANZAPINE [Concomitant]
  9. OMEPRAZOLE SODIUM (OMEPRAZOLE SODIUM) [Concomitant]
  10. ZETIA [Concomitant]
  11. TRAMADOL HCL [Concomitant]
  12. ACTONEL [Concomitant]
  13. NEURONIN [Concomitant]

REACTIONS (2)
  - BLOOD GLUCOSE INCREASED [None]
  - CONCOMITANT DISEASE AGGRAVATED [None]
